FAERS Safety Report 22742264 (Version 4)
Quarter: 2023Q4

REPORT INFORMATION
  Report Type: Report from Study
  Country: ES (occurrence: ES)
  Receive Date: 20230724
  Receipt Date: 20231004
  Transmission Date: 20240109
  Serious: Yes (Other)
  Sender: FDA-Public Use
  Company Number: ES-UCBSA-2023036648

PATIENT
  Age: 21 Year
  Sex: Female
  Weight: 47 kg

DRUGS (5)
  1. FENFLURAMINE HYDROCHLORIDE [Suspect]
     Active Substance: FENFLURAMINE HYDROCHLORIDE
     Indication: Product used for unknown indication
     Dosage: 8.8 MILLIGRAM, ONCE DAILY (QD)
     Dates: start: 20230102
  2. CANNABIDIOL [Concomitant]
     Active Substance: CANNABIDIOL
     Indication: Product used for unknown indication
     Dosage: UNK
  3. ETHOSUXIMIDE [Concomitant]
     Active Substance: ETHOSUXIMIDE
     Indication: Product used for unknown indication
     Dosage: UNK
  4. VALPROIC ACID [Concomitant]
     Active Substance: VALPROIC ACID
     Indication: Product used for unknown indication
     Dosage: UNK
  5. VIMPAT [Concomitant]
     Active Substance: LACOSAMIDE
     Indication: Product used for unknown indication
     Dosage: SINCE SEVERAL YEARS IN TREATMENT

REACTIONS (2)
  - Mitral valve thickening [Not Recovered/Not Resolved]
  - Mitral valve incompetence [Unknown]

NARRATIVE: CASE EVENT DATE: 20230622
